FAERS Safety Report 12798920 (Version 2)
Quarter: 2016Q4

REPORT INFORMATION
  Report Type: Spontaneous
  Country: TR (occurrence: TR)
  Receive Date: 20160930
  Receipt Date: 20161026
  Transmission Date: 20170207
  Serious: Yes (Life-Threatening, Hospitalization, Other)
  Sender: FDA-Public Use
  Company Number: TR-APOTEX-2016AP012422

PATIENT
  Age: 24 Year
  Sex: Female
  Weight: 68 kg

DRUGS (4)
  1. FLUOXETINE [Suspect]
     Active Substance: FLUOXETINE HYDROCHLORIDE
     Indication: SUICIDE ATTEMPT
     Dosage: UNK
     Route: 048
  2. VALPROIC ACID. [Suspect]
     Active Substance: VALPROIC ACID
     Indication: SUICIDE ATTEMPT
     Dosage: UNK
     Route: 048
  3. ESCITALOPRAM [Suspect]
     Active Substance: ESCITALOPRAM OXALATE
     Indication: SUICIDE ATTEMPT
     Dosage: UNK
     Route: 048
  4. OLANZAPINE. [Suspect]
     Active Substance: OLANZAPINE
     Indication: SUICIDE ATTEMPT
     Dosage: UNK
     Route: 048

REACTIONS (13)
  - Depressed level of consciousness [Recovered/Resolved]
  - Clonus [Unknown]
  - Loss of consciousness [Recovered/Resolved]
  - Sinus tachycardia [Unknown]
  - Respiratory depression [Recovered/Resolved]
  - Coma [Recovered/Resolved]
  - Suicide attempt [Not Recovered/Not Resolved]
  - Hypernatraemia [Unknown]
  - Toxicity to various agents [Unknown]
  - Hypocalcaemia [Unknown]
  - General physical health deterioration [Unknown]
  - Leukopenia [Unknown]
  - Somnolence [Unknown]
